FAERS Safety Report 8275269 (Version 3)
Quarter: 2013Q3

REPORT INFORMATION
  Report Type: Spontaneous
  Country: MX (occurrence: MX)
  Receive Date: 20111205
  Receipt Date: 20130701
  Transmission Date: 20140515
  Serious: Yes (Other)
  Sender: FDA-Public Use
  Company Number: PHHY2011MX104595

PATIENT
  Age: 72 Year
  Sex: Male
  Weight: 82 kg

DRUGS (2)
  1. EVEROLIMUS [Suspect]
     Indication: NEUROENDOCRINE TUMOUR
     Dosage: 10 MG, DAILY
     Dates: start: 20111107
  2. SANDOSTATIN LAR [Suspect]
     Indication: NEUROENDOCRINE TUMOUR
     Dosage: 30 MG,
     Route: 030
     Dates: start: 20111107

REACTIONS (4)
  - Dermatosis [Unknown]
  - Pruritus [Recovering/Resolving]
  - Rash maculo-papular [Recovering/Resolving]
  - Secretion discharge [Recovering/Resolving]
